FAERS Safety Report 6408971-9 (Version None)
Quarter: 2009Q4

REPORT INFORMATION
  Report Type: 
  Country: None (occurrence: None)
  Receive Date: 20091019
  Receipt Date: 20091019
  Transmission Date: 20100525
  Serious: Yes (Life-Threatening, Hospitalization, Other)
  Sender: FDA-Public Use
  Company Number: None

PATIENT
  Age: 67 Year
  Sex: Male
  Weight: 64.4108 kg

DRUGS (1)
  1. ERBITUX [Suspect]

REACTIONS (2)
  - HAEMOGLOBIN DECREASED [None]
  - RENAL FAILURE [None]
